FAERS Safety Report 8458194-7 (Version None)
Quarter: 2012Q2

REPORT INFORMATION
  Report Type: 
  Country: None (occurrence: None)
  Receive Date: 20120323
  Receipt Date: 20111115
  Transmission Date: 20120825
  Serious: Yes (Hospitalization)
  Sender: FDA-Public Use
  Company Number: 163-21880-11102811

PATIENT
  Age: 65 Year
  Sex: Male

DRUGS (5)
  1. DEXAMETHASONE [Concomitant]
  2. NEXIUM [Concomitant]
  3. REVLIMID [Suspect]
     Dosage: 25 MG, 1 IN 1 D, PO
     Route: 048
     Dates: start: 20110901
  4. CADUET [Concomitant]
  5. GABAPENTIN [Concomitant]

REACTIONS (1)
  - PNEUMONIA [None]
